FAERS Safety Report 8387490 (Version 3)
Quarter: 2014Q1

REPORT INFORMATION
  Report Type: Spontaneous
  Country: US (occurrence: US)
  Receive Date: 20120202
  Receipt Date: 20140321
  Transmission Date: 20141002
  Serious: Yes (Other)
  Sender: FDA-Public Use
  Company Number: US-PFIZER INC-2012025136

PATIENT
  Sex: Male

DRUGS (1)
  1. LYRICA [Suspect]
     Indication: LOCAL SWELLING
     Dosage: 150 MG, UNK

REACTIONS (4)
  - Herpes zoster [Unknown]
  - Post herpetic neuralgia [Unknown]
  - Oedema peripheral [Unknown]
  - Oropharyngeal pain [Unknown]
